FAERS Safety Report 9833573 (Version 2)
Quarter: 2014Q2

REPORT INFORMATION
  Report Type: Spontaneous
  Country: US (occurrence: US)
  Receive Date: 20140122
  Receipt Date: 20140408
  Transmission Date: 20141212
  Serious: Yes (Hospitalization)
  Sender: FDA-Public Use
  Company Number: US-BIOGENIDEC-2014BI004827

PATIENT
  Sex: Female

DRUGS (4)
  1. AVONEX [Suspect]
     Indication: MULTIPLE SCLEROSIS
     Route: 030
     Dates: start: 20080801, end: 20090501
  2. AVONEX [Suspect]
     Indication: MULTIPLE SCLEROSIS
     Route: 030
     Dates: start: 20110328, end: 20120402
  3. AVONEX [Suspect]
     Indication: MULTIPLE SCLEROSIS
     Route: 030
     Dates: start: 20120704, end: 20130403
  4. AVONEX [Suspect]
     Indication: MULTIPLE SCLEROSIS
     Route: 030
     Dates: start: 201304

REACTIONS (13)
  - Aortic valve replacement [Recovered/Resolved]
  - Choking [Recovered/Resolved]
  - Loss of consciousness [Unknown]
  - Multiple sclerosis relapse [Recovered/Resolved]
  - Fall [Recovered/Resolved]
  - Muscle disorder [Recovered/Resolved]
  - Diplopia [Recovered/Resolved]
  - Abasia [Recovered/Resolved]
  - Cognitive disorder [Recovered/Resolved]
  - Mental impairment [Unknown]
  - Fibromyalgia [Unknown]
  - Pain [Unknown]
  - Malaise [Recovered/Resolved]
